FAERS Safety Report 7298096-5 (Version None)
Quarter: 2011Q1

REPORT INFORMATION
  Report Type: 
  Country: None (occurrence: None)
  Receive Date: 20110217
  Receipt Date: 20110214
  Transmission Date: 20110831
  Serious: Yes (Life-Threatening, Hospitalization)
  Sender: FDA-Public Use
  Company Number: PHHY2011CA04585

PATIENT
  Sex: Female

DRUGS (5)
  1. NEXIUM [Concomitant]
  2. ACLASTA [Suspect]
     Indication: OSTEOPOROSIS
     Dosage: UNK
     Route: 042
     Dates: start: 20080101
  3. VITAMIN D [Concomitant]
  4. ACLASTA [Suspect]
     Dates: start: 20091120
  5. CALCIUM [Concomitant]

REACTIONS (1)
  - GASTRIC CANCER [None]
